FAERS Safety Report 8293101-1 (Version None)
Quarter: 2012Q2

REPORT INFORMATION
  Report Type: 
  Country: None (occurrence: None)
  Receive Date: 20120417
  Receipt Date: 20110928
  Transmission Date: 20120825
  Serious: Yes (Hospitalization, Other)
  Sender: FDA-Public Use
  Company Number: US-ASTRAZENECA-2011SE58360

PATIENT
  Age: 55 Year
  Sex: Female
  Weight: 86.2 kg

DRUGS (4)
  1. NEXIUM [Suspect]
     Indication: GASTROOESOPHAGEAL REFLUX DISEASE
     Route: 048
     Dates: start: 19900101, end: 20000101
  2. RAMIPRIL [Concomitant]
     Indication: HYPERTENSION
     Route: 048
  3. TRICOR [Concomitant]
     Indication: BLOOD CHOLESTEROL
     Route: 048
  4. LOVAZA [Concomitant]
     Indication: BLOOD CHOLESTEROL
     Route: 048

REACTIONS (1)
  - FRACTURE [None]
